FAERS Safety Report 6868335-0 (Version None)
Quarter: 2010Q3

REPORT INFORMATION
  Report Type: 
  Country: None (occurrence: None)
  Receive Date: 20100722
  Receipt Date: 20100714
  Transmission Date: 20110219
  Serious: Yes (Death, Hospitalization, Other)
  Sender: FDA-Public Use
  Company Number: US-AMGEN-QUU422480

PATIENT
  Sex: Female
  Weight: 32.7 kg

DRUGS (1)
  1. ENBREL [Suspect]
     Indication: RHEUMATOID ARTHRITIS
     Dates: start: 20050805, end: 20070801

REACTIONS (4)
  - METASTATIC SQUAMOUS CELL CARCINOMA [None]
  - PULMONARY HYPERTENSION [None]
  - SCLERODERMA [None]
  - TONGUE NEOPLASM MALIGNANT STAGE UNSPECIFIED [None]
